FAERS Safety Report 6083502-4 (Version None)
Quarter: 2009Q1

REPORT INFORMATION
  Report Type: 
  Country: None (occurrence: None)
  Receive Date: 20090219
  Receipt Date: 20090217
  Transmission Date: 20090719
  Serious: Yes (Hospitalization)
  Sender: FDA-Public Use
  Company Number: US-ASTRAZENECA-2009UW04484

PATIENT
  Age: 762 Month
  Sex: Male

DRUGS (1)
  1. SEROQUEL [Suspect]
     Route: 048
     Dates: start: 20060217

REACTIONS (7)
  - ABASIA [None]
  - ANTIPSYCHOTIC DRUG LEVEL INCREASED [None]
  - DEHYDRATION [None]
  - FATIGUE [None]
  - HYPERSOMNIA [None]
  - MALAISE [None]
  - PALPITATIONS [None]
